FAERS Safety Report 6215222-7 (Version None)
Quarter: 2009Q2

REPORT INFORMATION
  Report Type: 
  Country: None (occurrence: None)
  Receive Date: 20090604
  Receipt Date: 20090526
  Transmission Date: 20091009
  Serious: Yes (Hospitalization)
  Sender: FDA-Public Use
  Company Number: FR-NOVOPROD-287811

PATIENT
  Age: 82 Year
  Sex: Female

DRUGS (14)
  1. ACTRAPID [Suspect]
     Indication: TYPE 2 DIABETES MELLITUS
     Dosage: 12 IU, 2+5+5
     Route: 058
     Dates: end: 20090317
  2. DIGITALINE NATIVELLE [Suspect]
     Indication: CARDIAC FAILURE
     Dosage: .25 MG, QD
     Route: 048
     Dates: end: 20090324
  3. DIGITALINE NATIVELLE [Suspect]
     Dates: start: 20090327
  4. ALDACTONE [Suspect]
     Indication: HYPERTENSION
     Dosage: 25 MG, QD
     Route: 048
  5. TRIATEC                            /00885601/ [Suspect]
     Indication: HYPERTENSION
     Dosage: 10 MG, QD
     Route: 048
  6. AMLOR [Concomitant]
  7. LASILIX                            /00032601/ [Concomitant]
  8. PRAXILENE [Concomitant]
  9. TAHOR [Concomitant]
  10. LANTUS [Concomitant]
  11. TEMESTA                            /00273201/ [Concomitant]
  12. ATARAX [Concomitant]
  13. NORSET [Concomitant]
  14. PREVISCAN                          /00261401/ [Concomitant]

REACTIONS (5)
  - ANOREXIA [None]
  - CARDIAC FAILURE [None]
  - CHOLESTASIS [None]
  - OVERDOSE [None]
  - RENAL FAILURE [None]
